FAERS Safety Report 5569392-4 (Version None)
Quarter: 2007Q4

REPORT INFORMATION
  Report Type: 
  Country: None (occurrence: None)
  Receive Date: 20071220
  Receipt Date: 20071214
  Transmission Date: 20080405
  Serious: Yes (Other)
  Sender: FDA-Public Use
  Company Number: US-JNJFOC-20071204288

PATIENT
  Age: 60 Year
  Sex: Female
  Weight: 136.08 kg

DRUGS (4)
  1. EXTRA STRENGTH TYLENOL [Suspect]
  2. EXTRA STRENGTH TYLENOL [Suspect]
     Indication: PAIN
     Dosage: 1000 MG - 9000 MG DAILY
  3. THEO-DUR [Concomitant]
     Indication: ASTHMA
  4. CHLORPHENIRAMINE MALEATE [Concomitant]
     Indication: SINUS DISORDER

REACTIONS (3)
  - HEPATIC ENZYME INCREASED [None]
  - INCORRECT DRUG ADMINISTRATION DURATION [None]
  - INTENTIONAL OVERDOSE [None]
